FAERS Safety Report 8200537-3 (Version None)
Quarter: 2012Q1

REPORT INFORMATION
  Report Type: 
  Country: None (occurrence: None)
  Receive Date: 20120301
  Receipt Date: 20120220
  Transmission Date: 20120608
  Serious: Yes (Other)
  Sender: FDA-Public Use
  Company Number: 2011028843

PATIENT
  Age: 21 Year
  Sex: Female
  Weight: 41.7309 kg

DRUGS (24)
  1. OMEPRAZOLE [Concomitant]
  2. GLYCEROL 2.6% [Concomitant]
  3. IBUPROFEN [Concomitant]
  4. HIZENTRA [Suspect]
  5. MIRALAX [Concomitant]
  6. ZYRTEC [Concomitant]
  7. CALCIUM CARBONATE [Concomitant]
  8. VITAMIN D [Concomitant]
  9. FLEET ENEMA (PARAFFIN, LIQUID) [Concomitant]
  10. ACETAMINOPHEN [Concomitant]
  11. BOTOX (BOTULINUM TOXIN TYPE A) [Concomitant]
  12. TRAZODONE HCL [Concomitant]
  13. ZYRTEC [Concomitant]
  14. HIZENTRA [Suspect]
  15. MULTIVITAMIN (ACCOMIN MULTIVITAMIN) [Concomitant]
  16. HIZENTRA [Suspect]
  17. OXYBUTYNIN [Concomitant]
  18. HIZENTRA [Suspect]
     Indication: IMMUNODEFICIENCY COMMON VARIABLE
     Dosage: SEE IMAGE
     Route: 058
     Dates: start: 20100907
  19. HIZENTRA [Suspect]
     Indication: IMMUNODEFICIENCY COMMON VARIABLE
     Dosage: SEE IMAGE
     Route: 058
     Dates: start: 20100617
  20. HIZENTRA [Suspect]
     Indication: IMMUNODEFICIENCY COMMON VARIABLE
     Dosage: SEE IMAGE
     Route: 058
     Dates: start: 20100901
  21. HIZENTRA [Suspect]
  22. OCEAN NOSE SPRAY (SODIUM CHLORIDE) [Concomitant]
  23. MUPIROCIN [Concomitant]
  24. BACTRIM [Concomitant]

REACTIONS (8)
  - URINARY TRACT INFECTION [None]
  - ERYTHEMA [None]
  - RESPIRATORY TRACT INFECTION [None]
  - UPPER RESPIRATORY TRACT INFECTION [None]
  - SINUSITIS [None]
  - ORAL FUNGAL INFECTION [None]
  - DRUG INEFFECTIVE [None]
  - GASTROINTESTINAL INFECTION [None]
